FAERS Safety Report 5364006-0 (Version None)
Quarter: 2007Q2

REPORT INFORMATION
  Report Type: 
  Country: None (occurrence: None)
  Receive Date: 20070530
  Receipt Date: 20070116
  Transmission Date: 20071010
  Serious: No
  Sender: FDA-Public Use
  Company Number: 2006PV024106

PATIENT
  Age: 70 Year
  Sex: Female
  Weight: 72.8023 kg

DRUGS (7)
  1. BYETTA [Suspect]
     Indication: DIABETES MELLITUS NON-INSULIN-DEPENDENT
     Dosage: 5 MCG; BID; SC
     Route: 058
     Dates: start: 20060921
  2. HUMULIN N [Concomitant]
  3. HUMULIN N [Concomitant]
  4. HUMALOG [Concomitant]
  5. METFORMIN HCL [Concomitant]
  6. PEPCID [Concomitant]
  7. PRILOSEC [Concomitant]

REACTIONS (6)
  - DYSPEPSIA [None]
  - INJECTION SITE DISCOMFORT [None]
  - INJECTION SITE ERYTHEMA [None]
  - NAUSEA [None]
  - SPEECH DISORDER [None]
  - WEIGHT DECREASED [None]
